FAERS Safety Report 15145982 (Version 1)
Quarter: 2018Q3

REPORT INFORMATION
  Report Type: Spontaneous
  Country: GB (occurrence: GB)
  Receive Date: 20180714
  Receipt Date: 20180714
  Transmission Date: 20181010
  Serious: Yes (Hospitalization)
  Sender: FDA-Public Use
  Company Number: GB-TEVA-2018-GB-925215

PATIENT
  Age: 86 Year
  Sex: Male
  Weight: 56 kg

DRUGS (5)
  1. ACETYLSALICYLIC ACID [Concomitant]
     Active Substance: ASPIRIN
     Route: 065
  2. CO?CARELDOPA [Concomitant]
     Active Substance: CARBIDOPA\LEVODOPA
     Route: 065
  3. SINEMET CR [Concomitant]
     Active Substance: CARBIDOPA\LEVODOPA
     Route: 065
  4. SIMVASTATIN. [Concomitant]
     Active Substance: SIMVASTATIN
     Route: 065
  5. RIVASTIGMINE HYDROGEN TARTRATE [Suspect]
     Active Substance: RIVASTIGMINE TARTRATE
     Indication: PARKINSON^S DISEASE
     Dosage: 3 MILLIGRAM DAILY;
     Route: 048
     Dates: start: 20180503, end: 20180528

REACTIONS (1)
  - Pancreatitis acute [Not Recovered/Not Resolved]

NARRATIVE: CASE EVENT DATE: 20180528
